FAERS Safety Report 9693731 (Version 1)
Quarter: 2013Q4

REPORT INFORMATION
  Report Type: Spontaneous
  Country: US (occurrence: US)
  Receive Date: 20131118
  Receipt Date: 20131118
  Transmission Date: 20140711
  Serious: Yes (Other)
  Sender: FDA-Public Use
  Company Number: US-AMGEN-USASP2013080838

PATIENT
  Age: 62 Year
  Sex: Male

DRUGS (1)
  1. ENBREL [Suspect]
     Indication: PSORIATIC ARTHROPATHY
     Dosage: 50 MG, UNK (EVERY 4 DAYS)
     Route: 065
     Dates: start: 20080101

REACTIONS (2)
  - Gallbladder operation [Recovered/Resolved]
  - Pancreatic disorder [Not Recovered/Not Resolved]
